FAERS Safety Report 4731990-5 (Version None)
Quarter: 2005Q3

REPORT INFORMATION
  Report Type: 
  Country: None (occurrence: None)
  Receive Date: 20050725
  Receipt Date: 20040730
  Transmission Date: 20060218
  Serious: Yes (Hospitalization)
  Sender: FDA-Public Use
  Company Number: WAES 0408USA00035

PATIENT
  Age: 93 Year
  Sex: Male
  Weight: 62.5964 kg

DRUGS (9)
  1. VIOXX [Suspect]
     Indication: BACK PAIN
     Dosage: 25 MG/DAILY/PO
     Route: 048
     Dates: start: 20040721, end: 20040727
  2. VIOXX [Suspect]
     Indication: OSTEOARTHRITIS
     Dosage: 25 MG/DAILY/PO
     Route: 048
     Dates: start: 20040721, end: 20040727
  3. LANOXIN [Concomitant]
  4. LASIX [Concomitant]
  5. ULTRACET [Concomitant]
  6. ALLOPURINOL [Concomitant]
  7. ASPIRIN [Concomitant]
  8. ATENOLOL [Concomitant]
  9. MECLIZINE [Concomitant]

REACTIONS (1)
  - ACUTE PULMONARY OEDEMA [None]
